FAERS Safety Report 10241238 (Version 1)
Quarter: 2014Q1

REPORT INFORMATION
  Report Type: Spontaneous
  Country: US (occurrence: None)
  Receive Date: 20140306
  Receipt Date: 20140306
  Transmission Date: 20141002
  Serious: Yes (Other)
  Sender: FDA-Public Use
  Company Number: 163-21880-13051295

PATIENT
  Age: 60 Year
  Sex: Female

DRUGS (22)
  1. REVLIMID (LENALIDOMIDE) (10 MILLIGRAM, CAPSULES) [Suspect]
     Indication: PLASMA CELL MYELOMA
     Dosage: 10 MG, 21 IN 28 D, PO
     Route: 048
     Dates: start: 20121030
  2. AMBIEN (ZOLPIDEM TARTRATE) (UNKNOWN) [Concomitant]
  3. DEXAMETHASONE (DEXAMETHASONE) (UNKNOWN) [Concomitant]
  4. LASIX (FUROSEMIDE) (20 MILLIGRAM, TABLETS) [Concomitant]
  5. METHADONE HCL (METHADONE HYDROCHLORIDE) (UNKNOWN) [Concomitant]
  6. OXYCONTIN (OXYCODONE HYDROCHLORIDE) (UNKNOWN) [Concomitant]
  7. LORTAB (VICODIN) (UNKNOWN) [Concomitant]
  8. PANTOPRAZOLE SODIUM (PANTOPRAZOLE SODIUM) (UNKNOWN) [Concomitant]
  9. BUSPIRONE (BUSPIRONE) (15 MILLIGRAM, TABLETS) [Concomitant]
  10. CYANOCOBALAMIN (CYANOCOBALAMIN) (INJECTION) [Concomitant]
  11. FLUOXETINE (FLUOXETINE) (40 MILLIGRAM, TABLETS) [Concomitant]
  12. FOLIC ACID (FOLIC ACID) (1 MILLIGRAM, TABLETS) [Concomitant]
  13. GABAPENTIN (GABAPENTIN) (300 MILLIGRAM, CAPSULES) [Concomitant]
  14. LEVOTHYROXINE (LEVOTHYROXINE) (25 MICROGRAM, TABLETS) [Concomitant]
  15. MEDROL (METHYLPREDNISOLONE) (TABLETS) [Concomitant]
  16. NEXIUM (ESOMEPRAZOLE) (40 MILLIGRAM, CAPSULES) [Concomitant]
  17. MIRTAZAPINE (MIRTAZAPINE) (15 MILLIGRAM, TABLETS) [Concomitant]
  18. PREDNISONE (PREDNISONE) (10 MILLIGRAM, TABLETS) [Concomitant]
  19. PROMETHAZINE (PROMETHAZINE) (25 MILLIGRAM, TABLETS) [Concomitant]
  20. TIZANIDINE (TIZANIDINE) (4 MILLIGRAM, CAPSULES) [Concomitant]
  21. TRIAMCINOLONE ACETONIDE (TRIAMCINOLONE ACETONIDE) (OINTMENT) [Concomitant]
  22. VITAMIN D2 (ERGOCALCIFEROL) (CAPSULES) [Concomitant]

REACTIONS (2)
  - White blood cell count decreased [None]
  - Neutrophil count decreased [None]
